FAERS Safety Report 4497339-0 (Version None)
Quarter: 2004Q4

REPORT INFORMATION
  Report Type: 
  Country: None (occurrence: None)
  Receive Date: 20041110
  Receipt Date: 20041011
  Transmission Date: 20050328
  Serious: Yes (Hospitalization)
  Sender: FDA-Public Use
  Company Number: CH-JNJFOC-20041100403

PATIENT
  Age: 55 Year
  Sex: Male

DRUGS (8)
  1. NESIRITIDE [Suspect]
     Route: 042
  2. NESIRITIDE [Suspect]
     Route: 042
  3. NESIRITIDE [Suspect]
     Route: 042
  4. NESIRITIDE [Suspect]
     Dosage: NO BOLUS APPLICATION ADMINISTERED.
     Route: 042
  5. FRUSEMIDE [Concomitant]
  6. DOBUTAMINE [Concomitant]
  7. HEPARIN [Concomitant]
  8. PRAVASTATIN [Concomitant]

REACTIONS (3)
  - ASTHENIA [None]
  - CHILLS [None]
  - HYPOTENSION [None]
